FAERS Safety Report 7201452-4 (Version None)
Quarter: 2010Q4

REPORT INFORMATION
  Report Type: 
  Country: None (occurrence: None)
  Receive Date: 20101215
  Receipt Date: 20101202
  Transmission Date: 20110411
  Serious: Yes (Hospitalization)
  Sender: FDA-Public Use
  Company Number: UK-ACCORD-002092

PATIENT
  Age: 76 Year
  Sex: Male

DRUGS (2)
  1. SIMVASTATIN [Suspect]
     Indication: MYOCARDIAL INFARCTION
     Dosage: 20.00-MG-1.00PER
  2. REUMACON(REUMACON) [Suspect]
     Indication: PRODUCT USED FOR UNKNOWN INDICATION
     Dosage: 100.00-MG-2.00PER

REACTIONS (7)
  - DRUG INTERACTION [None]
  - FALL [None]
  - GAIT DISTURBANCE [None]
  - HYPOALBUMINAEMIA [None]
  - MUSCLE CONTRACTIONS INVOLUNTARY [None]
  - MYOPATHY [None]
  - PERIPHERAL SENSORY NEUROPATHY [None]
